FAERS Safety Report 8509587-0 (Version None)
Quarter: 2012Q3

REPORT INFORMATION
  Report Type: 
  Country: None (occurrence: None)
  Receive Date: 20120713
  Receipt Date: 20120706
  Transmission Date: 20120928
  Serious: Yes (Disabling)
  Sender: FDA-Public Use
  Company Number: CA-JNJFOC-20120703294

PATIENT
  Sex: Female
  Weight: 92.8 kg

DRUGS (8)
  1. TRAMADOL HCL [Concomitant]
     Route: 065
  2. ALL OTHER THERAPEUTIC PRODUCTS [Concomitant]
     Route: 065
  3. PREDNISONE [Concomitant]
     Route: 065
  4. ATACAND [Concomitant]
     Route: 065
  5. DICLOFENAC [Concomitant]
     Route: 065
  6. REMICADE [Suspect]
     Indication: RHEUMATOID ARTHRITIS
     Route: 042
  7. MEDROXYPROGESTERONE [Concomitant]
     Route: 065
  8. ZANTAC [Concomitant]
     Route: 065

REACTIONS (1)
  - GINGIVAL CYST [None]
